FAERS Safety Report 9672623 (Version 3)
Quarter: 2014Q2

REPORT INFORMATION
  Report Type: Spontaneous
  Country: US (occurrence: US)
  Receive Date: 20131106
  Receipt Date: 20140402
  Transmission Date: 20141212
  Serious: No
  Sender: FDA-Public Use
  Company Number: US-AMGEN-USASP2013066873

PATIENT
  Age: 19 Year
  Sex: Female
  Weight: 109.5 kg

DRUGS (9)
  1. ENBREL [Suspect]
     Indication: ANKYLOSING SPONDYLITIS
     Dosage: 50 MG, QWK
     Route: 058
     Dates: start: 201309
  2. ENBREL [Suspect]
     Dosage: UNK
     Route: 065
  3. MICROGESTIN [Concomitant]
     Dosage: UNK
  4. NORFLEX                            /00018303/ [Concomitant]
     Dosage: UNK
  5. ZYRTEC [Concomitant]
     Dosage: UNK
  6. DICLOFENAC [Concomitant]
     Dosage: UNK
  7. CONCERTA [Concomitant]
     Dosage: UNK
  8. PROPANOLOL                         /00030001/ [Concomitant]
     Dosage: UNK
  9. TRAMADOL [Concomitant]
     Dosage: UNK

REACTIONS (4)
  - Erythema [Unknown]
  - Injection site swelling [Not Recovered/Not Resolved]
  - Injection site erythema [Not Recovered/Not Resolved]
  - Injection site pain [Not Recovered/Not Resolved]
